FAERS Safety Report 18525583 (Version 1)
Quarter: 2020Q4

REPORT INFORMATION
  Report Type: Report from Study
  Country: GB (occurrence: GB)
  Receive Date: 20201120
  Receipt Date: 20201120
  Transmission Date: 20210114
  Serious: Yes (Other)
  Sender: FDA-Public Use
  Company Number: GB-JNJFOC-20201125653

PATIENT
  Sex: Female

DRUGS (8)
  1. AMLODIPINE [Concomitant]
     Active Substance: AMLODIPINE BESYLATE
  2. PRAMIPEXOLE. [Concomitant]
     Active Substance: PRAMIPEXOLE
  3. STELARA [Suspect]
     Active Substance: USTEKINUMAB
     Indication: PSORIASIS
     Route: 058
     Dates: start: 2015
  4. STELARA [Suspect]
     Active Substance: USTEKINUMAB
  5. GABAPENTIN. [Concomitant]
     Active Substance: GABAPENTIN
  6. ORAMORPH [Concomitant]
     Active Substance: MORPHINE SULFATE
  7. PARACETAMOL [Concomitant]
     Active Substance: ACETAMINOPHEN
  8. ATARAX [Concomitant]
     Active Substance: HYDROXYZINE HYDROCHLORIDE

REACTIONS (2)
  - Gastrointestinal disorder [Unknown]
  - Lower respiratory tract infection [Unknown]
